APPROVED DRUG PRODUCT: CIPRO
Active Ingredient: CIPROFLOXACIN
Strength: 500MG/5ML
Dosage Form/Route: FOR SUSPENSION;ORAL
Application: N020780 | Product #002 | TE Code: AB
Applicant: BAYER HEALTHCARE PHARMACEUTICALS INC
Approved: Sep 26, 1997 | RLD: Yes | RS: Yes | Type: RX